FAERS Safety Report 20519275 (Version 1)
Quarter: 2022Q1

REPORT INFORMATION
  Report Type: Spontaneous
  Country: US (occurrence: US)
  Receive Date: 20220225
  Receipt Date: 20220225
  Transmission Date: 20220423
  Serious: No
  Sender: FDA-Public Use
  Company Number: US-BAYER-2022A028871

PATIENT
  Age: 23 Year
  Sex: Female

DRUGS (2)
  1. MIRENA [Suspect]
     Active Substance: LEVONORGESTREL
     Indication: Contraception
     Dosage: 20?G/DAY
     Route: 015
     Dates: start: 202104
  2. OTEZLA [Suspect]
     Active Substance: APREMILAST

REACTIONS (2)
  - Throat irritation [None]
  - Dyspepsia [None]

NARRATIVE: CASE EVENT DATE: 20020201
